FAERS Safety Report 8070605 (Version 4)
Quarter: 2012Q4

REPORT INFORMATION
  Report Type: 
  Country: DE (occurrence: DE)
  Receive Date: 20110805
  Receipt Date: 20121030
  Transmission Date: 20130627
  Serious: Yes (Hospitalization, Other)
  Sender: FDA-Public Use
  Company Number: DE-UCBSA-037543

PATIENT
  Age: 37 Year
  Sex: Male
  Weight: 64 kg

DRUGS (1)
  1. KEPPRA [Suspect]
     Indication: SIMPLE PARTIAL SEIZURES
     Dosage: 500 MG / 100 ML NaCl within 2-4 minutes
     Route: 041
     Dates: start: 20110714, end: 20110714

REACTIONS (3)
  - Thrombophlebitis [Recovered/Resolved]
  - Vein disorder [Not Recovered/Not Resolved]
  - Infusion site pain [Recovered/Resolved]
